FAERS Safety Report 5301730-X (Version None)
Quarter: 2007Q2

REPORT INFORMATION
  Report Type: 
  Country: None (occurrence: None)
  Receive Date: 20070419
  Receipt Date: 20070412
  Transmission Date: 20071010
  Serious: Yes (Other)
  Sender: FDA-Public Use
  Company Number: GB-JNJFOC-20070106270

PATIENT
  Sex: Male
  Weight: 35.4 kg

DRUGS (5)
  1. CONCERTA [Suspect]
     Route: 065
  2. CONCERTA [Suspect]
     Route: 065
  3. CONCERTA [Suspect]
     Indication: ATTENTION DEFICIT/HYPERACTIVITY DISORDER
     Route: 065
  4. MELATONIN [Concomitant]
  5. OMEGA 3 SUPPLEMENT [Concomitant]

REACTIONS (2)
  - AGGRESSION [None]
  - ELECTROCARDIOGRAM QT CORRECTED INTERVAL PROLONGED [None]
